FAERS Safety Report 10553076 (Version 3)
Quarter: 2015Q1

REPORT INFORMATION
  Report Type: Report from Study
  Country: DE (occurrence: DE)
  Receive Date: 20141029
  Receipt Date: 20150226
  Transmission Date: 20150720
  Serious: Yes (Death)
  Sender: FDA-Public Use
  Company Number: DE-ROCHE-1480331

PATIENT
  Age: 64 Year
  Sex: Female
  Weight: 49 kg

DRUGS (7)
  1. EMEND [Concomitant]
     Active Substance: APREPITANT
     Indication: NAUSEA
     Route: 048
     Dates: start: 20140812, end: 20141023
  2. VOMEX A SUPPOSITORY [Concomitant]
     Indication: NAUSEA
     Route: 054
     Dates: start: 20140812, end: 20141023
  3. DOXORUBICIN [Suspect]
     Active Substance: DOXORUBICIN
     Indication: OVARIAN CANCER
     Dosage: LAST DOSE PRIOR TO SAE: 23/SEP/2014
     Route: 042
     Dates: start: 20140729
  4. BEVACIZUMAB [Suspect]
     Active Substance: BEVACIZUMAB
     Indication: OVARIAN CANCER
     Dosage: LAST DOSE PRIOR TO SAE: 23/SEP/2014
     Route: 042
     Dates: start: 20140729
  5. CARBOPLATIN. [Suspect]
     Active Substance: CARBOPLATIN
     Indication: OVARIAN CANCER
     Dosage: LAST DOSE PRIOR TO SAE: 23/SEP/2014
     Route: 042
     Dates: start: 20140729
  6. FORTECORTIN [Concomitant]
     Active Substance: DEXAMETHASONE
     Indication: CHEMOTHERAPY
     Route: 048
     Dates: start: 20140812, end: 20141023
  7. LOPERAMID [Concomitant]
     Active Substance: LOPERAMIDE
     Indication: DIARRHOEA
     Route: 048
     Dates: start: 20140812, end: 20141023

REACTIONS (1)
  - Infection [Fatal]

NARRATIVE: CASE EVENT DATE: 20141014
